FAERS Safety Report 7609878-1 (Version None)
Quarter: 2011Q3

REPORT INFORMATION
  Report Type: 
  Country: None (occurrence: None)
  Receive Date: 20110714
  Receipt Date: 20110705
  Transmission Date: 20111222
  Serious: Yes (Other)
  Sender: FDA-Public Use
  Company Number: PHHY2011US60645

PATIENT
  Age: 78 Year
  Sex: Male

DRUGS (3)
  1. BOLDO [Interacting]
     Dosage: 300 MG, BID
     Dates: end: 20100901
  2. CELLCEPT [Concomitant]
     Dosage: 500 MG, BID
  3. TACROLIMUS [Suspect]
     Indication: RENAL TRANSPLANT
     Dosage: 2 MG, BID
     Dates: start: 20090801

REACTIONS (2)
  - DRUG LEVEL DECREASED [None]
  - DRUG INTERACTION [None]
